FAERS Safety Report 20961826 (Version 1)
Quarter: 2022Q2

REPORT INFORMATION
  Report Type: Spontaneous
  Country: US (occurrence: None)
  Receive Date: 20220614
  Receipt Date: 20220614
  Transmission Date: 20220721
  Serious: Yes (Disabling)
  Sender: FDA-Public Use
  Company Number: None

PATIENT
  Age: 27 Year
  Sex: Female
  Weight: 60.75 kg

DRUGS (1)
  1. DEXTROAMPHET SACCHARAT, AMPHET ASPARTATE, DEXTROAMPHET SULFATE AND AMP [Suspect]
     Active Substance: AMPHETAMINE ASPARTATE\AMPHETAMINE SULFATE\DEXTROAMPHETAMINE SACCHARATE\DEXTROAMPHETAMINE SULFATE
     Indication: Narcolepsy
     Route: 048
     Dates: start: 20220516, end: 20220614

REACTIONS (7)
  - Product complaint [None]
  - Anxiety [None]
  - Illness [None]
  - Flushing [None]
  - Hyperhidrosis [None]
  - Hypersomnia [None]
  - Product substitution issue [None]

NARRATIVE: CASE EVENT DATE: 20220516
